FAERS Safety Report 18063226 (Version 1)
Quarter: 2020Q3

REPORT INFORMATION
  Report Type: Spontaneous
  Country: US (occurrence: US)
  Receive Date: 20200724
  Receipt Date: 20200724
  Transmission Date: 20201103
  Serious: Yes (Hospitalization)
  Sender: FDA-Public Use
  Company Number: US-JNJFOC-20200727988

PATIENT
  Age: 14 Year
  Sex: Female

DRUGS (1)
  1. BENADRYL [Suspect]
     Active Substance: DIPHENHYDRAMINE HYDROCHLORIDE
     Indication: EUPHORIC MOOD
     Dosage: 14 PILLS ONCE
     Route: 048
     Dates: start: 20200525, end: 20200525

REACTIONS (6)
  - Speech disorder [Unknown]
  - Heart rate increased [Recovered/Resolved]
  - Intentional product misuse [Unknown]
  - Electrocardiogram abnormal [Unknown]
  - Intentional overdose [Unknown]
  - Hallucination [Unknown]

NARRATIVE: CASE EVENT DATE: 20200525
